FAERS Safety Report 8807274 (Version 1)
Quarter: 2012Q4

REPORT INFORMATION
  Report Type: 
  Country: US (occurrence: US)
  Receive Date: 20120925
  Receipt Date: 20120925
  Transmission Date: 20130627
  Serious: Yes (Other)
  Sender: FDA-Public Use
  Company Number: US-PFIZER INC-2012234786

PATIENT
  Age: 42 Year
  Sex: Male

DRUGS (4)
  1. LORATADINE [Suspect]
     Indication: NASAL DRYNESS
     Dosage: 1 per day
     Route: 048
     Dates: start: 20120907
  2. DILANTIN [Suspect]
     Indication: CONVULSION
     Dosage: UNK
     Route: 048
     Dates: start: 201207
  3. CLARITIN [Suspect]
     Indication: NASAL DRYNESS
     Dosage: 1 per day
     Route: 048
     Dates: start: 201207
  4. CELEXA [Suspect]
     Indication: DEPRESSION
     Dosage: UNK
     Route: 048

REACTIONS (3)
  - Convulsion [Recovered/Resolved]
  - Dizziness [Not Recovered/Not Resolved]
  - Lethargy [Not Recovered/Not Resolved]
